FAERS Safety Report 11421230 (Version 2)
Quarter: 2015Q4

REPORT INFORMATION
  Report Type: Report from Study
  Country: US (occurrence: US)
  Receive Date: 20150826
  Receipt Date: 20151117
  Transmission Date: 20160304
  Serious: Yes (Death, Other)
  Sender: FDA-Public Use
  Company Number: US-GILEAD-2015-0168391

PATIENT
  Age: 49 Year
  Sex: Male

DRUGS (3)
  1. AZTREONAM LYSINE [Suspect]
     Active Substance: AZTREONAM LYSINE
     Indication: PSEUDOMONAS INFECTION
     Dosage: 75 MG, UNK,  ROTATED CAYSTON 28 DAYS ON AND 28 DAYS OFF WAS ON ^OFF CYCLE^ OF CAYSTON
     Route: 055
     Dates: start: 20150616
  2. AZTREONAM LYSINE [Suspect]
     Active Substance: AZTREONAM LYSINE
     Indication: CYSTIC FIBROSIS
     Dosage: 75 MG, UNK, ROTATED CAYSTON 28 DAYS ON AND 28 DAYS OFF WAS ON ^OFF CYCLE^ OF CAYSTON
     Route: 055
     Dates: start: 20150520
  3. AZTREONAM LYSINE [Suspect]
     Active Substance: AZTREONAM LYSINE
     Indication: CYSTIC FIBROSIS LUNG

REACTIONS (3)
  - Acute respiratory failure [Fatal]
  - Cystic fibrosis [Fatal]
  - Large intestine perforation [Fatal]
